FAERS Safety Report 22400802 (Version 8)
Quarter: 2023Q4

REPORT INFORMATION
  Report Type: Spontaneous
  Country: US (occurrence: US)
  Receive Date: 20230602
  Receipt Date: 20231228
  Transmission Date: 20240110
  Serious: Yes (Other)
  Sender: FDA-Public Use
  Company Number: US-PFIZER INC-PV202300097437

PATIENT
  Age: 79 Year
  Sex: Female
  Weight: 58.05 kg

DRUGS (6)
  1. IBRANCE [Suspect]
     Active Substance: PALBOCICLIB
     Indication: Breast cancer metastatic
     Dosage: TAKE ONE TABLET DAILY ON 1 -21 DAYS, OFF 7 DAYS (START ON A MONDAY)
  2. IBRANCE [Suspect]
     Active Substance: PALBOCICLIB
     Dosage: ONE TABLET DAILY ON DAYS 1-21, OFF 7 DAYS
  3. IBRANCE [Suspect]
     Active Substance: PALBOCICLIB
     Dosage: 1 TABLET DAILY 1-21 DAYS, OFF 7 DAYS OF EACH 28 DAY CYCLE
  4. IBRANCE [Suspect]
     Active Substance: PALBOCICLIB
     Dosage: 75 MG, 1X/DAY
  5. IBRANCE [Suspect]
     Active Substance: PALBOCICLIB
     Dosage: 75 MG, 1X/DAY
  6. LETROZOLE [Concomitant]
     Active Substance: LETROZOLE
     Dosage: UNK

REACTIONS (5)
  - White blood cell count decreased [Recovered/Resolved]
  - Localised infection [Recovered/Resolved]
  - Full blood count decreased [Not Recovered/Not Resolved]
  - Memory impairment [Unknown]
  - Infection [Recovered/Resolved]
